FAERS Safety Report 5135551-8 (Version None)
Quarter: 2006Q4

REPORT INFORMATION
  Report Type: 
  Country: None (occurrence: None)
  Receive Date: 20061026
  Receipt Date: 20061011
  Transmission Date: 20070319
  Serious: Yes (Death, Hospitalization)
  Sender: FDA-Public Use
  Company Number: US-AMGEN-US196492

PATIENT
  Sex: Male
  Weight: 71.3 kg

DRUGS (10)
  1. ENBREL [Suspect]
     Indication: RHEUMATOID ARTHRITIS
     Route: 058
     Dates: start: 20020115, end: 20050315
  2. ARAVA [Concomitant]
  3. FOSAMAX [Concomitant]
     Dates: end: 20060301
  4. PREDNISONE TAB [Concomitant]
     Dates: start: 19990101, end: 20060301
  5. PRILOSEC [Concomitant]
  6. FLUNISOLIDE [Concomitant]
     Route: 045
  7. ALBUTEROL [Concomitant]
     Dates: end: 20060301
  8. ZOCOR [Concomitant]
  9. CALCIUM GLUCONATE [Concomitant]
     Dates: end: 20060301
  10. CORTICOSTEROIDS [Concomitant]

REACTIONS (24)
  - ASPERGILLOSIS [None]
  - AUTOIMMUNE THYROIDITIS [None]
  - BRONCHOPLEURAL FISTULA [None]
  - CARDIAC DISORDER [None]
  - CORONARY ARTERY DISEASE [None]
  - ENCEPHALOPATHY [None]
  - HEPATIC CONGESTION [None]
  - HEPATIC NECROSIS [None]
  - HISTOPLASMOSIS [None]
  - HYPERADRENALISM [None]
  - HYPERKALAEMIA [None]
  - INTRACARDIAC THROMBUS [None]
  - ISCHAEMIC HEPATITIS [None]
  - MARROW HYPERPLASIA [None]
  - MENTAL STATUS CHANGES [None]
  - MULTI-ORGAN FAILURE [None]
  - MYOCARDIAL INFARCTION [None]
  - OESOPHAGITIS ULCERATIVE [None]
  - PNEUMONIA NECROTISING [None]
  - PULMONARY EMBOLISM [None]
  - PULMONARY HYPERTENSION [None]
  - RENAL FAILURE ACUTE [None]
  - RESPIRATORY FAILURE [None]
  - SPLENIC INFARCTION [None]
